FAERS Safety Report 7783182-3 (Version None)
Quarter: 2011Q3

REPORT INFORMATION
  Report Type: 
  Country: None (occurrence: None)
  Receive Date: 20110928
  Receipt Date: 20110916
  Transmission Date: 20111222
  Serious: Yes (Hospitalization)
  Sender: FDA-Public Use
  Company Number: DE-SANOFI-AVENTIS-2011SA058367

PATIENT
  Age: 45 Year
  Sex: Female

DRUGS (8)
  1. FLUOROURACIL [Suspect]
     Route: 065
  2. BEVACIZUMAB [Suspect]
     Dosage: FORM REPORTED AS AMPULE
     Route: 042
     Dates: start: 20110627, end: 20110715
  3. OXALIPLATIN [Suspect]
     Route: 065
  4. LEUCOVORIN CALCIUM [Suspect]
     Route: 065
  5. IRINOTECAN HCL [Suspect]
     Route: 065
  6. BEVACIZUMAB [Suspect]
     Dosage: FORM REPORTED AS AMPULE
     Route: 042
     Dates: start: 20110815, end: 20110815
  7. ONDANSETRON [Concomitant]
     Dates: start: 20110711
  8. ARIXTRA [Concomitant]
     Dates: start: 20110708

REACTIONS (1)
  - FEMALE GENITAL TRACT FISTULA [None]
